FAERS Safety Report 10269971 (Version 1)
Quarter: 2014Q3

REPORT INFORMATION
  Report Type: Spontaneous
  Country: AU (occurrence: AU)
  Receive Date: 20140701
  Receipt Date: 20140701
  Transmission Date: 20150326
  Serious: Yes (Hospitalization, Other)
  Sender: FDA-Public Use
  Company Number: AU-ASTRAZENECA-2014SE46331

PATIENT
  Age: 48 Year
  Sex: Female

DRUGS (16)
  1. METRONIDAZOLE. [Suspect]
     Active Substance: METRONIDAZOLE
  2. NICORANDIL [Suspect]
     Active Substance: NICORANDIL
  3. ENDONE [Suspect]
     Active Substance: OXYCODONE HYDROCHLORIDE
  4. TRAMADOL [Suspect]
     Active Substance: TRAMADOL
  5. CITALOPRAM HYDROBROMIDE. [Concomitant]
     Active Substance: CITALOPRAM HYDROBROMIDE
  6. DIABEX [Concomitant]
     Active Substance: METFORMIN HYDROCHLORIDE
  7. VENTOLIN [Concomitant]
     Active Substance: ALBUTEROL SULFATE
  8. CRESTOR [Suspect]
     Active Substance: ROSUVASTATIN CALCIUM
     Route: 048
     Dates: start: 20130718
  9. THYROXINE SODIUM [Concomitant]
     Active Substance: LEVOTHYROXINE SODIUM
  10. FRUSEMIDE [Suspect]
     Active Substance: FUROSEMIDE
     Route: 048
     Dates: start: 20130711
  11. ASPIRIN. [Suspect]
     Active Substance: ASPIRIN
     Route: 048
     Dates: start: 20130718
  12. NITROLINGUAL PUMPSPRAY [Suspect]
     Active Substance: NITROGLYCERIN
     Route: 060
     Dates: start: 20130711
  13. IMDUR [Suspect]
     Active Substance: ISOSORBIDE MONONITRATE
     Route: 048
     Dates: start: 20130729
  14. CHOLECALCIFEROL [Concomitant]
     Active Substance: CHOLECALCIFEROL
  15. PANADEINE [Suspect]
     Active Substance: ACETAMINOPHEN\CODEINE PHOSPHATE
     Dosage: DOSE UNSPECIFIED
  16. NEXIUM [Concomitant]
     Active Substance: ESOMEPRAZOLE MAGNESIUM

REACTIONS (26)
  - Back pain [Unknown]
  - Malaise [Unknown]
  - Hernia [Unknown]
  - Weight decreased [Unknown]
  - Spinal osteoarthritis [Unknown]
  - Hypoaesthesia [Unknown]
  - Tearfulness [Unknown]
  - Menorrhagia [Unknown]
  - Off label use [Unknown]
  - Neck pain [Unknown]
  - Headache [Unknown]
  - Drug dependence [Unknown]
  - Musculoskeletal pain [Unknown]
  - Pain [Unknown]
  - Nausea [Unknown]
  - Angina pectoris [Unknown]
  - Insomnia [Unknown]
  - Appendix disorder [Unknown]
  - Constipation [Recovered/Resolved]
  - Hyperparathyroidism [Unknown]
  - Cardiac failure [Unknown]
  - Pain in extremity [Unknown]
  - Drug hypersensitivity [Unknown]
  - Osteoarthritis [Unknown]
  - Angina unstable [Unknown]
  - Sensory loss [Unknown]

NARRATIVE: CASE EVENT DATE: 2008
